FAERS Safety Report 15709222 (Version 2)
Quarter: 2019Q1

REPORT INFORMATION
  Report Type: Spontaneous
  Country: US (occurrence: US)
  Receive Date: 20181211
  Receipt Date: 20190125
  Transmission Date: 20190417
  Serious: Yes (Other)
  Sender: FDA-Public Use
  Company Number: US-009507513-1812USA000021

PATIENT
  Age: 17 Year
  Sex: Female
  Weight: 50.34 kg

DRUGS (1)
  1. NEXPLANON [Suspect]
     Active Substance: ETONOGESTREL
     Indication: CONTRACEPTION
     Dosage: 1 ROD, IN LEFT ARM, FREQUENCY 3 YEARS
     Route: 023
     Dates: start: 20181018, end: 20181116

REACTIONS (6)
  - Device difficult to use [Recovered/Resolved]
  - Mood altered [Unknown]
  - Depression [Unknown]
  - Device deployment issue [Recovered/Resolved]
  - Complication associated with device [Recovered/Resolved]
  - Complication of device removal [Recovered/Resolved]

NARRATIVE: CASE EVENT DATE: 201810
